FAERS Safety Report 14148404 (Version 1)
Quarter: 2017Q4

REPORT INFORMATION
  Report Type: Spontaneous
  Country: CN (occurrence: CN)
  Receive Date: 20171101
  Receipt Date: 20171101
  Transmission Date: 20180321
  Serious: Yes (Other)
  Sender: FDA-Public Use
  Company Number: CN-ALLERGAN-1760592US

PATIENT
  Age: 51 Year
  Sex: Female

DRUGS (1)
  1. ESCITALOPRAM OXALATE - BP [Suspect]
     Active Substance: ESCITALOPRAM OXALATE
     Indication: DEPRESSION
     Route: 048
     Dates: start: 20150930, end: 2017

REACTIONS (6)
  - Poor quality sleep [Unknown]
  - Nausea [Recovering/Resolving]
  - Visual impairment [Unknown]
  - Haematochezia [Recovered/Resolved]
  - Intentional dose omission [Unknown]
  - Arrhythmia [Unknown]

NARRATIVE: CASE EVENT DATE: 20170420
